FAERS Safety Report 16013046 (Version 1)
Quarter: 2019Q1

REPORT INFORMATION
  Report Type: Spontaneous
  Country: FR (occurrence: FR)
  Receive Date: 20190227
  Receipt Date: 20190227
  Transmission Date: 20190418
  Serious: Yes (Life-Threatening, Other)
  Sender: FDA-Public Use
  Company Number: FR-MYLANLABS-2019M1018391

PATIENT
  Age: 74 Year
  Sex: Female

DRUGS (6)
  1. AZACITIDINE. [Suspect]
     Active Substance: AZACITIDINE
     Indication: CHRONIC MYELOMONOCYTIC LEUKAEMIA
     Dosage: 75 MG/M2, UNK
     Route: 042
  2. FEIBA [Concomitant]
     Active Substance: ANTI-INHIBITOR COAGULANT COMPLEX
     Dosage: 75 INTERNATIONAL UNIT/KILOGRAM, QD
     Route: 065
  3. PREDNISONE. [Suspect]
     Active Substance: PREDNISONE
     Indication: ACQUIRED HAEMOPHILIA
     Dosage: 1 MG/KG, QD
     Route: 065
  4. RITUXIMAB. [Suspect]
     Active Substance: RITUXIMAB
     Indication: ACQUIRED HAEMOPHILIA
     Dosage: 1 UNK, QW(375 MG/KG/M2, QW)
     Route: 041
  5. FEIBA [Concomitant]
     Active Substance: ANTI-INHIBITOR COAGULANT COMPLEX
     Indication: ACQUIRED HAEMOPHILIA
     Dosage: 150 INTERNATIONAL UNIT/KILOGRAM, QD (75 IU/KG, BID)
     Route: 065
  6. FEIBA [Concomitant]
     Active Substance: ANTI-INHIBITOR COAGULANT COMPLEX
     Dosage: 75 INTERNATIONAL UNIT/KILOGRAM, Q2D (75 IU/KG, Q48H )
     Route: 065

REACTIONS (4)
  - Carotid artery thrombosis [Unknown]
  - Abnormal behaviour [Unknown]
  - Necrotising fasciitis [Recovering/Resolving]
  - Ischaemic stroke [Unknown]
